FAERS Safety Report 9983530 (Version 1)
Quarter: 2014Q1

REPORT INFORMATION
  Report Type: Spontaneous
  Country: BG (occurrence: BG)
  Receive Date: 20140307
  Receipt Date: 20140307
  Transmission Date: 20141002
  Serious: Yes (Life-Threatening, Hospitalization)
  Sender: FDA-Public Use
  Company Number: BG-B.I. PHARMACEUTICALS,INC./RIDGEFIELD-2014-BI-09762BQ

PATIENT
  Age: 87 Year
  Sex: Female

DRUGS (2)
  1. PRADAXA [Suspect]
     Indication: ATRIAL FIBRILLATION
     Dosage: 150 MG
     Route: 048
     Dates: start: 20140303, end: 20140304
  2. CLEXANE [Concomitant]
     Indication: SUBDURAL HAEMATOMA
     Route: 048
     Dates: start: 20140222, end: 20140303

REACTIONS (1)
  - Ischaemic stroke [Not Recovered/Not Resolved]
